FAERS Safety Report 12211244 (Version 2)
Quarter: 2016Q2

REPORT INFORMATION
  Report Type: Spontaneous
  Country: FI (occurrence: FI)
  Receive Date: 20160325
  Receipt Date: 20160411
  Transmission Date: 20160815
  Serious: Yes (Hospitalization, Other)
  Sender: FDA-Public Use
  Company Number: FI-PFIZER INC-2016173340

PATIENT
  Age: 67 Year
  Sex: Male

DRUGS (9)
  1. FLUVASTATIN ACTAVIS [Concomitant]
     Dosage: 40 MG, DAILY
     Route: 048
  2. MAGNESIUM PLUS /01486801/ [Concomitant]
     Dosage: 1 DF, 2X/DAY
     Route: 048
  3. EXFORGE [Concomitant]
     Active Substance: AMLODIPINE BESYLATE\VALSARTAN
     Dosage: 5/160/12.5 MG DAILY
     Route: 048
  4. SALAZOPYRIN [Suspect]
     Active Substance: SULFASALAZINE
     Indication: PSORIATIC ARTHROPATHY
     Dosage: 1000 MG, 2X/DAY
     Route: 048
     Dates: start: 20160204, end: 20160228
  5. XELEVIA [Concomitant]
     Active Substance: SITAGLIPTIN PHOSPHATE
     Dosage: 100 MG, DAILY
     Route: 048
  6. METFOREM [Concomitant]
     Active Substance: METFORMIN HYDROCHLORIDE
     Dosage: 1000 MG, 2X/DAY
     Route: 048
  7. ORLOC [Concomitant]
     Active Substance: BISOPROLOL FUMARATE
     Dosage: 40 MG, DAILY
     Route: 048
  8. PRIMASPAN [Concomitant]
     Active Substance: ASPIRIN
     Dosage: 100 MG, DAILY
     Route: 048
  9. AVODART [Concomitant]
     Active Substance: DUTASTERIDE
     Dosage: 0.5 MG, DAILY
     Route: 048

REACTIONS (16)
  - Lymphadenopathy [Unknown]
  - Chills [Unknown]
  - Generalised erythema [Recovering/Resolving]
  - Cough [Unknown]
  - Dermatitis exfoliative [Recovering/Resolving]
  - Purpura [Unknown]
  - Hepatomegaly [Unknown]
  - Malaise [Unknown]
  - Face oedema [Recovered/Resolved]
  - Acute generalised exanthematous pustulosis [Recovering/Resolving]
  - Pruritus [Recovering/Resolving]
  - Body temperature increased [Unknown]
  - Rhinorrhoea [Unknown]
  - Nausea [Unknown]
  - Rash pustular [Recovering/Resolving]
  - Erythema [Recovering/Resolving]

NARRATIVE: CASE EVENT DATE: 201602
